FAERS Safety Report 13981641 (Version 1)
Quarter: 2017Q3

REPORT INFORMATION
  Report Type: Spontaneous
  Country: US (occurrence: US)
  Receive Date: 20170918
  Receipt Date: 20170918
  Transmission Date: 20171128
  Serious: No
  Sender: FDA-Public Use
  Company Number: US-BION-004979

PATIENT
  Age: 65 Year
  Sex: Female

DRUGS (2)
  1. CETIRIZINE/CETIRIZINE HYDROCHLORIDE [Suspect]
     Active Substance: CETIRIZINE HYDROCHLORIDE
     Route: 048
  2. LORATADINE. [Suspect]
     Active Substance: LORATADINE

REACTIONS (1)
  - Somnolence [Unknown]
